FAERS Safety Report 4705516-6 (Version None)
Quarter: 2005Q2

REPORT INFORMATION
  Report Type: 
  Country: None (occurrence: None)
  Receive Date: 20050628
  Receipt Date: 20050613
  Transmission Date: 20051028
  Serious: Yes (Other)
  Sender: FDA-Public Use
  Company Number: GBS050617641

PATIENT
  Age: 54 Year
  Sex: Female

DRUGS (4)
  1. YENTREVE (DULOXETINE HYDROCHLORIDE) [Suspect]
     Indication: STRESS INCONTINENCE
     Dosage: 40 MG/2 DAY
     Dates: start: 20050509, end: 20050530
  2. OXYBUTYNIN [Concomitant]
  3. DICLOFENAC SODIUM [Concomitant]
  4. ESTRADERM (ESTRADIOL /00045401/) [Concomitant]

REACTIONS (3)
  - DIZZINESS [None]
  - FATIGUE [None]
  - SYNCOPE [None]
